FAERS Safety Report 17554823 (Version 1)
Quarter: 2020Q1

REPORT INFORMATION
  Report Type: Spontaneous
  Country: US (occurrence: US)
  Receive Date: 20200310
  Receipt Date: 20200310
  Transmission Date: 20200409
  Serious: Yes (Hospitalization)
  Sender: FDA-Public Use
  Company Number: None

PATIENT
  Age: 48 Year
  Sex: Female

DRUGS (19)
  1. TACROLIMUS 1MG CAP [Suspect]
     Active Substance: TACROLIMUS
     Indication: RENAL TRANSPLANT
     Route: 048
     Dates: start: 20190213
  2. CEFDNIR [Concomitant]
  3. MYCOPHENLIC [Concomitant]
  4. AMOXICILLIN. [Concomitant]
     Active Substance: AMOXICILLIN
  5. AMOX/K CLAV [Concomitant]
     Active Substance: AMOXICILLIN\CLAVULANATE POTASSIUM
  6. METHYLPRED [Concomitant]
     Active Substance: METHYLPREDNISOLONE
  7. NITROFURANTIN [Concomitant]
     Active Substance: NITROFURANTOIN
  8. SMZ/TMP DS [Concomitant]
     Active Substance: SULFAMETHOXAZOLE\TRIMETHOPRIM
  9. ATENOLOL. [Concomitant]
     Active Substance: ATENOLOL
  10. BUT/CIPROFLOXACIN [Concomitant]
  11. LEVOFLOXACIN. [Concomitant]
     Active Substance: LEVOFLOXACIN
  12. LISINOPRIL. [Concomitant]
     Active Substance: LISINOPRIL
  13. ONDANSETRON [Concomitant]
     Active Substance: ONDANSETRON
  14. PREDNISONE. [Concomitant]
     Active Substance: PREDNISONE
  15. TYLENOL [Concomitant]
     Active Substance: ACETAMINOPHEN
  16. VITAMIN D [Concomitant]
     Active Substance: VITAMIN D NOS
  17. CEFUROXIME. [Concomitant]
     Active Substance: CEFUROXIME
  18. APAP/CODEINE [Concomitant]
     Active Substance: ACETAMINOPHEN\CODEINE PHOSPHATE
  19. METRONIDAZOL [Concomitant]
     Active Substance: METRONIDAZOLE

REACTIONS (1)
  - Bacterial infection [None]

NARRATIVE: CASE EVENT DATE: 20200213
